FAERS Safety Report 8004480-4 (Version None)
Quarter: 2011Q4

REPORT INFORMATION
  Report Type: 
  Country: None (occurrence: None)
  Receive Date: 20111221
  Receipt Date: 20111221
  Transmission Date: 20120403
  Serious: Yes (Hospitalization)
  Sender: FDA-Public Use
  Company Number: None

PATIENT
  Sex: Male
  Weight: 119 kg

DRUGS (2)
  1. TAXOL [Suspect]
     Dosage: 110 MG
     Dates: end: 20101005
  2. CISPLATIN [Suspect]
     Dosage: 55 MG
     Dates: end: 20101005

REACTIONS (6)
  - ATRIAL FLUTTER [None]
  - DEHYDRATION [None]
  - FALL [None]
  - DIARRHOEA [None]
  - DIZZINESS [None]
  - DECREASED APPETITE [None]
